FAERS Safety Report 5080904-X (Version None)
Quarter: 2006Q3

REPORT INFORMATION
  Report Type: 
  Country: None (occurrence: None)
  Receive Date: 20060810
  Receipt Date: 20060728
  Transmission Date: 20061208
  Serious: Yes (Life-Threatening, Hospitalization, Other)
  Sender: FDA-Public Use
  Company Number: 2006077455

PATIENT
  Age: 96 Year
  Sex: Female

DRUGS (12)
  1. SULPERAZON (SULBACTAM, CEFOPERAZONE) [Suspect]
     Indication: CHOLECYSTITIS
     Dosage: 1 GRAM (2 IN 1 D), INTRAVENOUS; SEE IMAGE
     Route: 042
     Dates: start: 20060602, end: 20060602
  2. SULPERAZON (SULBACTAM, CEFOPERAZONE) [Suspect]
     Indication: CHOLECYSTITIS
     Dosage: 1 GRAM (2 IN 1 D), INTRAVENOUS; SEE IMAGE
     Route: 042
     Dates: start: 20060603, end: 20060612
  3. MIRACLID                (ULINASTATIN) (ULINASTATIN) [Concomitant]
  4. DEPAKENE [Concomitant]
  5. SOLDEM 3AG           (MAINTENANCE MEDIUM) [Concomitant]
  6. VITAMEDIN (THIAMINE MONOPHOSPHATE DISULFIDE/B6/B12) (CYANOCOBALAMIN, P [Concomitant]
  7. SOLACET D (ACETATED RINGER SOLUTION WITH GLUCOSE) [Concomitant]
  8. ANZIEF                                 (ALLOPURINOL) [Concomitant]
  9. GLUCONSAN K                       (POTASSIUM GLUCONATE) [Concomitant]
  10. ADONA (CARBAZOCHROME SODIUMSULFONATE) [Concomitant]
  11. TRANSAMIN                 (TRANEXAMIC ACID) [Concomitant]
  12. LASIX [Concomitant]

REACTIONS (7)
  - ELECTROLYTE IMBALANCE [None]
  - HYPERKALAEMIA [None]
  - HYPOKALAEMIA [None]
  - HYPOPROTHROMBINAEMIA [None]
  - INTERNATIONAL NORMALISED RATIO INCREASED [None]
  - ORAL INTAKE REDUCED [None]
  - PANCREATIC CARCINOMA [None]
